FAERS Safety Report 8282197-9 (Version None)
Quarter: 2012Q2

REPORT INFORMATION
  Report Type: 
  Country: None (occurrence: None)
  Receive Date: 20120413
  Receipt Date: 20120404
  Transmission Date: 20120825
  Serious: Yes (Hospitalization)
  Sender: FDA-Public Use
  Company Number: SE-ASTRAZENECA-2012SE18078

PATIENT
  Age: 92 Year
  Sex: Female

DRUGS (15)
  1. MALVITONA [Concomitant]
  2. POLYETHYLENE GLYCOL [Concomitant]
     Route: 048
  3. ATACAND [Suspect]
     Indication: CARDIAC FAILURE
     Route: 048
     Dates: end: 20120225
  4. NITROMEX [Concomitant]
     Route: 060
  5. XERODENT [Concomitant]
  6. ACETAMINOPHEN [Concomitant]
  7. IMDUR [Concomitant]
  8. SPIRONOLACTONE [Concomitant]
  9. ACETYLCYSTEINE [Concomitant]
  10. DIGOXIN [Concomitant]
  11. DAKTACORT [Concomitant]
  12. ZOLPIDEM TARTRATE [Concomitant]
  13. LEVOTHYROXINE SODIUM [Concomitant]
  14. OMEPRAZOLE [Concomitant]
  15. FERROUS SULFATE TAB [Concomitant]
     Dosage: 100 MG FE2+

REACTIONS (3)
  - DYSPNOEA [None]
  - HYPOTENSION [None]
  - WEIGHT INCREASED [None]
